FAERS Safety Report 8372849-4 (Version None)
Quarter: 2012Q2

REPORT INFORMATION
  Report Type: 
  Country: None (occurrence: None)
  Receive Date: 20120521
  Receipt Date: 20120518
  Transmission Date: 20120825
  Serious: Yes (Other)
  Sender: FDA-Public Use
  Company Number: US-PFIZER INC-2012121435

PATIENT
  Sex: Male
  Weight: 87.528 kg

DRUGS (1)
  1. GEODON [Suspect]
     Indication: BIPOLAR DISORDER
     Dosage: 160 MG (TWO 80MG MAKING TOTAL DOSE OF 160MG), 1X/DAY
     Route: 048
     Dates: start: 19960101

REACTIONS (1)
  - HAND FRACTURE [None]
